FAERS Safety Report 17468594 (Version 1)
Quarter: 2020Q1

REPORT INFORMATION
  Report Type: Spontaneous
  Country: US (occurrence: US)
  Receive Date: 20200227
  Receipt Date: 20200227
  Transmission Date: 20200409
  Serious: Yes (Life-Threatening)
  Sender: FDA-Public Use
  Company Number: None

PATIENT
  Age: 83 Year
  Sex: Female
  Weight: 40.82 kg

DRUGS (22)
  1. FARYDAK [Suspect]
     Active Substance: PANOBINOSTAT
     Indication: PLASMA CELL MYELOMA
     Dosage: ?          OTHER FREQUENCY:M,F,W 14D/21 DAYS;?
     Route: 048
  2. BIOTIN [Concomitant]
     Active Substance: BIOTIN
  3. MEDICAL MARIJUANA [Concomitant]
     Active Substance: CANNABIS SATIVA SUBSP. INDICA TOP
  4. VALTREX 500MG [Concomitant]
  5. XGEVA [Concomitant]
     Active Substance: DENOSUMAB
  6. SYNTHROID [Concomitant]
     Active Substance: LEVOTHYROXINE SODIUM
  7. XANAX [Concomitant]
     Active Substance: ALPRAZOLAM
  8. ARANESP 100MCG/ML IJ [Concomitant]
  9. CALCIUM 600MG [Concomitant]
  10. EMEND 150MG IV [Concomitant]
     Dates: end: 20200121
  11. AMLODIPINE 2.5MG [Concomitant]
     Active Substance: AMLODIPINE BESYLATE
  12. DEXAMETHASONE 4MG [Concomitant]
     Active Substance: DEXAMETHASONE
  13. SUMATRIPTAN 25MG [Concomitant]
  14. VITAMIN D 10,000U [Concomitant]
  15. GAMMAGARD 1GM/10ML IJ [Concomitant]
  16. POMALYST 2MG [Concomitant]
     Dates: end: 20200123
  17. SOLU-MEDROL 1000MG IJ [Concomitant]
     Dates: end: 20200121
  18. ESTRACE [Concomitant]
     Active Substance: ESTRADIOL
  19. LEVAQUIN [Concomitant]
     Active Substance: LEVOFLOXACIN
  20. PROTONIX [Concomitant]
     Active Substance: PANTOPRAZOLE SODIUM
  21. HYDRALAZINE 10MG [Concomitant]
     Active Substance: HYDRALAZINE HYDROCHLORIDE
  22. HYCOSAMINE 0.125MG [Concomitant]

REACTIONS (1)
  - Disease progression [None]
